FAERS Safety Report 4740520-3 (Version None)
Quarter: 2005Q3

REPORT INFORMATION
  Report Type: 
  Country: None (occurrence: None)
  Receive Date: 20050809
  Receipt Date: 20050608
  Transmission Date: 20060218
  Serious: Yes (Disabling)
  Sender: FDA-Public Use
  Company Number: 2005S1004614

PATIENT
  Age: 64 Year
  Sex: Female

DRUGS (7)
  1. FENTANYL [Suspect]
     Indication: BACK PAIN
     Dosage: 75 MCG/HR;Q3D;TDER
     Route: 062
     Dates: start: 20040408, end: 20050501
  2. PARACETAMOL/TRADMADOL HCL [Concomitant]
  3. LIDOCAINE [Concomitant]
  4. ALPRAZOLAM [Concomitant]
  5. METHYLESTOSTERONE/ESTROGENS ESTERIFIED [Concomitant]
  6. CETIRIZINE HCL [Concomitant]
  7. FLUCONAZOLE [Concomitant]

REACTIONS (4)
  - ACTIVITIES OF DAILY LIVING IMPAIRED [None]
  - ANXIETY [None]
  - DRUG WITHDRAWAL SYNDROME [None]
  - PAIN [None]
